FAERS Safety Report 6938483-5 (Version None)
Quarter: 2010Q3

REPORT INFORMATION
  Report Type: 
  Country: None (occurrence: None)
  Receive Date: 20100824
  Receipt Date: 20100817
  Transmission Date: 20110219
  Serious: Yes (Hospitalization)
  Sender: FDA-Public Use
  Company Number: US-SANOFI-AVENTIS-2010SA048734

PATIENT
  Age: 92 Year
  Sex: Female

DRUGS (4)
  1. LANTUS [Suspect]
     Dosage: INSULIN GLARGINE TAKEN FOR 1 YEAR AND 9 MONTHS DOSE:15 UNIT(S)
     Route: 058
     Dates: start: 20100801
  2. LANTUS [Suspect]
     Dosage: DOSE:10 UNIT(S)
     Route: 058
     Dates: end: 20100801
  3. NOVOLOG [Suspect]
  4. ANTITHROMBOTIC AGENTS [Concomitant]

REACTIONS (8)
  - BLOOD GLUCOSE FLUCTUATION [None]
  - BLOOD GLUCOSE INCREASED [None]
  - EAR PAIN [None]
  - INJECTION SITE HAEMATOMA [None]
  - PNEUMONIA [None]
  - SOMNOLENCE [None]
  - URINARY TRACT INFECTION [None]
  - VISION BLURRED [None]
